FAERS Safety Report 19010839 (Version 1)
Quarter: 2021Q1

REPORT INFORMATION
  Report Type: Spontaneous
  Country: US (occurrence: US)
  Receive Date: 20210315
  Receipt Date: 20210315
  Transmission Date: 20210420
  Serious: Yes (Hospitalization)
  Sender: FDA-Public Use
  Company Number: None

PATIENT
  Sex: Female

DRUGS (1)
  1. ADAKVEO [Suspect]
     Active Substance: CRIZANLIZUMAB-TMCA
     Indication: SICKLE CELL ANAEMIA WITH CRISIS
     Route: 058
     Dates: start: 20200326

REACTIONS (6)
  - Therapy interrupted [None]
  - Sickle cell anaemia with crisis [None]
  - COVID-19 [None]
  - Pneumonia [None]
  - Thrombosis [None]
  - Acute chest syndrome [None]
